FAERS Safety Report 5809807-7 (Version None)
Quarter: 2008Q3

REPORT INFORMATION
  Report Type: 
  Country: None (occurrence: None)
  Receive Date: 20080714
  Receipt Date: 20080714
  Transmission Date: 20090109
  Serious: Yes (Life-Threatening, Hospitalization)
  Sender: FDA-Public Use
  Company Number: None

PATIENT
  Age: 65 Year
  Sex: Female

DRUGS (2)
  1. VALSARTAN [Suspect]
     Indication: HYPERTENSIVE CRISIS
     Dosage: 160MG DAILY PO
     Route: 048
     Dates: start: 20080402, end: 20080405
  2. ENALAPRIL MALEATE [Suspect]
     Dosage: 1.25MG Q6PRN IV
     Route: 042
     Dates: start: 20080402, end: 20080406

REACTIONS (4)
  - COUGH [None]
  - LIP SWELLING [None]
  - SWOLLEN TONGUE [None]
  - THROAT IRRITATION [None]
